FAERS Safety Report 23830787 (Version 1)
Quarter: 2024Q2

REPORT INFORMATION
  Report Type: Spontaneous
  Country: US (occurrence: US)
  Receive Date: 20240508
  Receipt Date: 20240508
  Transmission Date: 20240715
  Serious: No
  Sender: FDA-Public Use
  Company Number: US-Biofrontera-2024BIO00056

PATIENT
  Sex: Female

DRUGS (1)
  1. AMELUZ [Suspect]
     Active Substance: AMINOLEVULINIC ACID HYDROCHLORIDE
     Indication: Actinic keratosis
     Dates: start: 20240417, end: 20240417

REACTIONS (4)
  - Application site pain [Unknown]
  - Application site pain [Unknown]
  - Off label use [Unknown]
  - Application site pain [Unknown]

NARRATIVE: CASE EVENT DATE: 20240417
